FAERS Safety Report 7634558-6 (Version None)
Quarter: 2011Q3

REPORT INFORMATION
  Report Type: 
  Country: None (occurrence: None)
  Receive Date: 20110725
  Receipt Date: 20110720
  Transmission Date: 20111222
  Serious: Yes (Other)
  Sender: FDA-Public Use
  Company Number: GB-PFIZER INC-2011165444

PATIENT
  Age: 40 Year
  Sex: Female

DRUGS (4)
  1. PROPRANOLOL [Concomitant]
     Dosage: 40 MG DAILY
  2. CEFALEXIN [Concomitant]
     Dosage: 90 MG, UNK
  3. PROMETHAZINE [Concomitant]
     Dosage: 25 MG, UNK
  4. PREGABALIN [Suspect]
     Indication: GENERALISED ANXIETY DISORDER
     Dosage: 100 MG, 3X/DAY

REACTIONS (3)
  - VISUAL IMPAIRMENT [None]
  - HALO VISION [None]
  - HALLUCINATION, SYNAESTHETIC [None]
